FAERS Safety Report 8201693-3 (Version None)
Quarter: 2012Q1

REPORT INFORMATION
  Report Type: 
  Country: None (occurrence: None)
  Receive Date: 20120312
  Receipt Date: 20120301
  Transmission Date: 20120608
  Serious: Yes (Other)
  Sender: FDA-Public Use
  Company Number: CA-ROCHE-1045746

PATIENT
  Sex: Female
  Weight: 59.02 kg

DRUGS (11)
  1. PLAQUENIL [Concomitant]
     Route: 048
  2. SULFASALAZINE [Concomitant]
     Route: 048
  3. IBUPROFEN [Concomitant]
  4. FOLIC ACID [Concomitant]
  5. METHYLPREDNISOLONE [Concomitant]
     Route: 042
     Dates: start: 20120216, end: 20120216
  6. LOVAZA [Concomitant]
  7. MABTHERA [Suspect]
     Indication: RHEUMATOID ARTHRITIS
     Route: 042
     Dates: start: 20120216
  8. DIPHENHYDRAMINE HCL [Concomitant]
     Route: 048
     Dates: start: 20120216, end: 20120216
  9. SYNTHROID [Concomitant]
     Route: 048
  10. ACETAMINOPHEN [Concomitant]
     Route: 048
     Dates: start: 20120216, end: 20120216
  11. METHOTREXATE [Concomitant]
     Route: 058

REACTIONS (2)
  - CONVULSION [None]
  - INFUSION RELATED REACTION [None]
